FAERS Safety Report 7073763-7 (Version None)
Quarter: 2010Q4

REPORT INFORMATION
  Report Type: 
  Country: None (occurrence: None)
  Receive Date: 20101029
  Receipt Date: 20100811
  Transmission Date: 20110411
  Serious: No
  Sender: FDA-Public Use
  Company Number: A0875206A

PATIENT
  Age: 83 Year
  Sex: Male

DRUGS (5)
  1. ADVAIR DISKUS 100/50 [Suspect]
     Indication: CHRONIC OBSTRUCTIVE PULMONARY DISEASE
     Dosage: 1PUFF TWICE PER DAY
     Route: 055
     Dates: start: 20100630
  2. AVODART [Concomitant]
  3. NEXIUM [Concomitant]
  4. LOVAZA [Concomitant]
  5. FLAX SEED [Concomitant]

REACTIONS (4)
  - AGEUSIA [None]
  - DRY MOUTH [None]
  - DYSPEPSIA [None]
  - DYSPHONIA [None]
